FAERS Safety Report 6534918-0 (Version None)
Quarter: 2010Q1

REPORT INFORMATION
  Report Type: 
  Country: None (occurrence: None)
  Receive Date: 20100112
  Receipt Date: 20100105
  Transmission Date: 20100710
  Serious: Yes (Hospitalization)
  Sender: FDA-Public Use
  Company Number: US-AMGEN-QUU383880

PATIENT
  Sex: Male

DRUGS (1)
  1. ENBREL [Suspect]
     Indication: RHEUMATOID ARTHRITIS
     Route: 058
     Dates: start: 20020101

REACTIONS (6)
  - APPENDICECTOMY [None]
  - ARTHRALGIA [None]
  - CORONARY ARTERIAL STENT INSERTION [None]
  - INJECTION SITE PAIN [None]
  - JOINT SWELLING [None]
  - PERIPHERAL NERVE OPERATION [None]
